FAERS Safety Report 14375739 (Version 1)
Quarter: 2018Q1

REPORT INFORMATION
  Report Type: Spontaneous
  Country: US (occurrence: US)
  Receive Date: 20180110
  Receipt Date: 20180110
  Transmission Date: 20180509
  Serious: No
  Sender: FDA-Public Use
  Company Number: None

PATIENT
  Age: 44 Year
  Sex: Male
  Weight: 120.15 kg

DRUGS (2)
  1. PHENELZINE [Suspect]
     Active Substance: PHENELZINE
     Indication: PANIC DISORDER
     Route: 048
  2. PHENELZINE [Suspect]
     Active Substance: PHENELZINE
     Indication: OBSESSIVE-COMPULSIVE DISORDER
     Route: 048

REACTIONS (8)
  - Insomnia [None]
  - Dizziness [None]
  - Product substitution issue [None]
  - Irritability [None]
  - Visual impairment [None]
  - Thinking abnormal [None]
  - Anger [None]
  - Illusion [None]

NARRATIVE: CASE EVENT DATE: 20170101
